FAERS Safety Report 9649146 (Version 2)
Quarter: 2013Q4

REPORT INFORMATION
  Report Type: Spontaneous
  Country: US (occurrence: US)
  Receive Date: 20131028
  Receipt Date: 20131028
  Transmission Date: 20140711
  Serious: No
  Sender: FDA-Public Use
  Company Number: US-SA-POMP-1003151

PATIENT
  Age: 41 Year
  Sex: Female
  Weight: 104.32 kg

DRUGS (11)
  1. LUMIZYME [Suspect]
     Indication: GLYCOGEN STORAGE DISEASE TYPE II
     Dosage: 20 MG/KG, Q2W
     Route: 042
     Dates: start: 20120525
  2. PARACETAMOL [Concomitant]
     Indication: PREMEDICATION
     Dosage: 500 MG, Q2W
     Route: 065
  3. DIPHENHYDRAMINE [Concomitant]
     Indication: PREMEDICATION
     Dosage: 50 MG, Q2W
     Route: 065
  4. CYCLOBENZAPRINE HYDROCHLORIDE [Concomitant]
     Dosage: 10 MG, QD
     Route: 065
  5. FEXOFENADINE HYDROCHLORIDE [Concomitant]
     Dosage: 180 MG, QD
     Route: 065
  6. ALLIUM SATIVUM [Concomitant]
     Dosage: 1 UNK, QD
     Route: 065
  7. MELOXICAM [Concomitant]
     Dosage: 15 MG, QD
     Route: 065
  8. VITAMINS NOS [Concomitant]
     Dosage: 1 UNK, QD
     Route: 065
  9. OMEPRAZOLE [Concomitant]
     Dosage: 40 MG, QD
     Route: 065
  10. ROPINIROLE HYDROCHLORIDE [Concomitant]
     Dosage: 1 MG, BID
     Route: 065
  11. TRIAMTERENE HCTZ 37.5/25MG [Concomitant]
     Dosage: UNK
     Route: 065

REACTIONS (1)
  - Rash pruritic [Unknown]
